FAERS Safety Report 17967210 (Version 1)
Quarter: 2020Q3

REPORT INFORMATION
  Report Type: Report from Study
  Country: US (occurrence: US)
  Receive Date: 20200701
  Receipt Date: 20200701
  Transmission Date: 20201103
  Serious: Yes (Hospitalization)
  Sender: FDA-Public Use
  Company Number: US-ROCHE-2630715

PATIENT
  Sex: Female
  Weight: 57.66 kg

DRUGS (5)
  1. CALCIUM CARBONATE AND VITAMIN D [Concomitant]
     Active Substance: CALCIUM CARBONATE\VITAMIN D
     Route: 048
  2. NEUROTIN [GABAPENTIN] [Concomitant]
     Route: 048
  3. SINGULAIR [Concomitant]
     Active Substance: MONTELUKAST SODIUM
     Dosage: TAKE 10 MG BY MOUTH DAILY AT BEDTIME
     Route: 048
  4. ACTEMRA [Suspect]
     Active Substance: TOCILIZUMAB
     Indication: GIANT CELL ARTERITIS
     Route: 042
     Dates: start: 20200401
  5. NORVASC [Concomitant]
     Active Substance: AMLODIPINE BESYLATE
     Route: 048

REACTIONS (6)
  - Vision blurred [Unknown]
  - Fatigue [Unknown]
  - Muscular weakness [Unknown]
  - White blood cell count increased [Unknown]
  - Urosepsis [Unknown]
  - Skin fragility [Unknown]
